FAERS Safety Report 22349175 (Version 3)
Quarter: 2023Q2

REPORT INFORMATION
  Report Type: Other
  Country: NL (occurrence: NL)
  Receive Date: 20230522
  Receipt Date: 20230607
  Transmission Date: 20230722
  Serious: Yes (Hospitalization)
  Sender: FDA-Public Use
  Company Number: NL-CELLTRION INC.-2023NL010392

PATIENT

DRUGS (37)
  1. RITUXIMAB [Suspect]
     Active Substance: RITUXIMAB
     Indication: Diffuse large B-cell lymphoma stage I
     Dosage: 375 MILLIGRAM/ SQ. METER, 1Q3W, AS A PART OF R-MINI CHOP
     Route: 042
     Dates: start: 20221213, end: 20221213
  2. RITUXIMAB [Suspect]
     Active Substance: RITUXIMAB
     Dosage: 1400 MILLIGRAM, 1Q3W, AS A PART OF R-MINI CHOP
     Route: 058
     Dates: start: 20230103, end: 20230103
  3. RITUXIMAB [Suspect]
     Active Substance: RITUXIMAB
     Dosage: 1400 MILLIGRAM, 1Q3W, AS A PART OF R-MINI CHOP
     Route: 058
     Dates: start: 20230207, end: 20230417
  4. DOXORUBICIN [Suspect]
     Active Substance: DOXORUBICIN
     Indication: Diffuse large B-cell lymphoma stage I
     Dosage: 25 MILLIGRAM/ SQ. METER, 1Q3W, DOSAGE FORM- SOLUTION FOR INFUSION, AS A PART OF R-MINI CHOP
     Route: 042
     Dates: start: 20230207, end: 20230417
  5. DOXORUBICIN [Suspect]
     Active Substance: DOXORUBICIN
     Dosage: 25 MILLIGRAM/ SQ. METER, 1Q3W, DOSAGE FORM- SOLUTION FOR INFUSION, AS A PART OF R-MINI CHOP
     Route: 042
     Dates: start: 20221214, end: 20230103
  6. CYCLOPHOSPHAMIDE [Suspect]
     Active Substance: CYCLOPHOSPHAMIDE
     Indication: Diffuse large B-cell lymphoma stage I
     Dosage: 400 MILLIGRAM/ SQ. METER, 1Q3W, DOSAGE FORM- POWDER FOR SOLUTION FOR INJECTION, AS A PART OF R-MINI
     Route: 042
     Dates: start: 20221213, end: 20230103
  7. CYCLOPHOSPHAMIDE [Suspect]
     Active Substance: CYCLOPHOSPHAMIDE
     Dosage: 400 MILLIGRAM/ SQ. METER, 1Q3W, DOSAGE FORM- POWDER FOR SOLUTION FOR INJECTION, AS A PART OF R-MINI
     Route: 042
     Dates: start: 20230207, end: 20230324
  8. VINCRISTINE SULFATE [Suspect]
     Active Substance: VINCRISTINE SULFATE
     Indication: Diffuse large B-cell lymphoma stage I
     Dosage: 1 MILLIGRAM/ SQ. METER, 1Q3W, AS A PART OF R-MINI CHOP
     Route: 065
     Dates: start: 20230207, end: 20230324
  9. VINCRISTINE SULFATE [Suspect]
     Active Substance: VINCRISTINE SULFATE
     Dosage: 1 MILLIGRAM/ SQ. METER, 1Q3W, AS A PART OF R-MINI CHOP
     Route: 065
     Dates: start: 20221212, end: 20230103
  10. EPCORITAMAB [Suspect]
     Active Substance: EPCORITAMAB
     Indication: Diffuse large B-cell lymphoma stage I
     Dosage: PRIMARY DOSE-0.16 MILLIGRAM, SINGLE (C1D1), AS A PART OF EPCORITAMAB AND R-MINI CHOP REGIMEN
     Route: 058
     Dates: start: 20221212, end: 20221212
  11. EPCORITAMAB [Suspect]
     Active Substance: EPCORITAMAB
     Dosage: INTERMEDIATE DOSE- 0.8 MILLIGRAM, SINGLE (C18D), AS A PART OF EPCORITAMAB AND R-MINI CHOP REGIMEN
     Route: 058
     Dates: start: 20221219, end: 20221219
  12. EPCORITAMAB [Suspect]
     Active Substance: EPCORITAMAB
     Dosage: FULL DOSE- 48 MILLIGRAM, WEEKLY, (C1D15-C2D15), AS A PART OF EPCORITAMAB AND R-MINI CHOP REGIMEN
     Route: 058
     Dates: start: 20221227, end: 20230117
  13. EPCORITAMAB [Suspect]
     Active Substance: EPCORITAMAB
     Dosage: FULL DOSE- 48 MILLIGRAM, 1Q3W (C3D1-C6D1), AS A PART OF EPCORITAMAB AND R-MINI CHOP REGIMEN
     Route: 058
     Dates: start: 20230207, end: 20230417
  14. EPCORITAMAB [Suspect]
     Active Substance: EPCORITAMAB
     Dosage: 48 MG
     Route: 058
     Dates: start: 20230508
  15. PREDNISOLONE [Suspect]
     Active Substance: PREDNISOLONE
     Indication: Diffuse large B-cell lymphoma stage I
     Dosage: 100 MILLIGRAM, QD, AS A PART OF R-MINI CHOP
     Route: 048
     Dates: start: 20230103, end: 20230107
  16. PREDNISOLONE [Suspect]
     Active Substance: PREDNISOLONE
     Dosage: 80 MILLIGRAM, QD, NUTRITION PROBE, AS A PART OF R-MINI CHOP
     Route: 065
     Dates: start: 20230207, end: 20230212
  17. PREDNISOLONE [Suspect]
     Active Substance: PREDNISOLONE
     Dosage: 100 MILLIGRAM, QD, ROUTE: PARENTERAL, AS A PART OF R-MINI CHOP
     Route: 050
     Dates: start: 20230227, end: 20230303
  18. PREDNISOLONE [Suspect]
     Active Substance: PREDNISOLONE
     Dosage: 75 MILLIGRAM, QD, AS A PART OF R-MINI CHOP
     Route: 065
     Dates: start: 20230417, end: 20230421
  19. PREDNISOLONE [Suspect]
     Active Substance: PREDNISOLONE
     Dosage: 100 MILLIGRAM, QD, ROUTE: PARENTERAL, AS A PART OF R-MINI CHOP
     Route: 050
     Dates: start: 20230324, end: 20230328
  20. PREDNISOLONE [Suspect]
     Active Substance: PREDNISOLONE
     Dosage: 100 MILLIGRAM, QD, AS A PART OF R-MINI CHOP
     Route: 048
     Dates: start: 20221213, end: 20221216
  21. SOTALOL [Concomitant]
     Active Substance: SOTALOL
     Dosage: UNK
     Route: 065
     Dates: start: 20221118
  22. CLEMASTINE [Concomitant]
     Active Substance: CLEMASTINE
     Dosage: 2 MG
     Route: 042
     Dates: start: 20230417, end: 20230417
  23. ACETAMINOPHEN [Concomitant]
     Active Substance: ACETAMINOPHEN
     Dosage: UNK
     Route: 065
     Dates: start: 20230309
  24. ACETAMINOPHEN [Concomitant]
     Active Substance: ACETAMINOPHEN
     Dosage: 1000 MG
     Route: 054
     Dates: start: 20230417, end: 20230417
  25. MAGNESIUM HYDROXIDE [Concomitant]
     Active Substance: MAGNESIUM HYDROXIDE
     Dosage: UNK
     Route: 065
     Dates: start: 20230314
  26. GRANISETRON [Concomitant]
     Active Substance: GRANISETRON
     Dosage: UNK
     Route: 065
     Dates: start: 20230407, end: 20230421
  27. ROSUVASTATIN [Concomitant]
     Active Substance: ROSUVASTATIN
     Dosage: UNK
     Route: 065
     Dates: start: 20220602
  28. PREDNISOLONE SODIUM SUCCINATE [Concomitant]
     Active Substance: PREDNISOLONE SODIUM SUCCINATE
     Route: 065
  29. BISACODYL [Concomitant]
     Active Substance: BISACODYL
     Dosage: UNK
     Route: 065
     Dates: start: 20230327
  30. ESOMEPRAZOLE [Concomitant]
     Active Substance: ESOMEPRAZOLE
     Dosage: UNK
     Route: 065
     Dates: start: 20230223
  31. AMINOMIX 1 NOVUM [Concomitant]
     Dosage: UNK
     Route: 065
     Dates: start: 20230301
  32. METOCLOPRAMIDE [Concomitant]
     Active Substance: METOCLOPRAMIDE
     Dosage: UNK
     Route: 065
     Dates: start: 20230405
  33. CALCIUM CARBONATE;MAGNESIUM CARBONATE [Concomitant]
     Dosage: UNK
     Route: 065
     Dates: start: 20230502
  34. ONDANSETRON [Concomitant]
     Active Substance: ONDANSETRON
     Dosage: UNK
     Route: 065
     Dates: start: 20230410
  35. PANTOPRAZOLE [Concomitant]
     Active Substance: PANTOPRAZOLE
     Dosage: UNK
     Route: 065
     Dates: start: 20230417, end: 20230421
  36. POTASSIUM CHLORIDE [Concomitant]
     Active Substance: POTASSIUM CHLORIDE
     Dosage: UNK
     Route: 065
     Dates: start: 20230428
  37. DEXTROSE [Concomitant]
     Active Substance: DEXTROSE\DEXTROSE MONOHYDRATE
     Dosage: UNK
     Route: 065
     Dates: start: 20230417

REACTIONS (2)
  - Pyrexia [Recovered/Resolved]
  - Intentional product use issue [Unknown]

NARRATIVE: CASE EVENT DATE: 20230501
